FAERS Safety Report 25381258 (Version 2)
Quarter: 2025Q2

REPORT INFORMATION
  Report Type: Spontaneous
  Country: IT (occurrence: IT)
  Receive Date: 20250530
  Receipt Date: 20250612
  Transmission Date: 20250716
  Serious: Yes (Hospitalization)
  Sender: PFIZER
  Company Number: None

PATIENT
  Age: 55 Year
  Sex: Female

DRUGS (2)
  1. CIBINQO [Suspect]
     Active Substance: ABROCITINIB
     Indication: Dermatitis atopic
     Route: 048
     Dates: start: 20240516, end: 20240523
  2. CIBINQO [Suspect]
     Active Substance: ABROCITINIB
     Dates: start: 202407, end: 202408

REACTIONS (2)
  - Erysipelas [Recovering/Resolving]
  - Subcutaneous abscess [Recovering/Resolving]

NARRATIVE: CASE EVENT DATE: 20240523
